FAERS Safety Report 13114182 (Version 2)
Quarter: 2017Q2

REPORT INFORMATION
  Report Type: Spontaneous
  Country: US (occurrence: US)
  Receive Date: 20170113
  Receipt Date: 20170427
  Transmission Date: 20170830
  Serious: No
  Sender: FDA-Public Use
  Company Number: US-PFIZER INC-2017011687

PATIENT
  Age: 72 Year
  Sex: Male

DRUGS (3)
  1. LISINOPRIL. [Concomitant]
     Active Substance: LISINOPRIL
     Indication: BLOOD PRESSURE ABNORMAL
     Dosage: 5MG TABLET BY MOUTH ONCE A DAY
     Route: 048
  2. ATORVASTATIN CALCIUM. [Suspect]
     Active Substance: ATORVASTATIN CALCIUM
     Indication: BLOOD CHOLESTEROL ABNORMAL
     Dosage: 10MG TABLET BY MOUTH ONCE A DAY IN THE EVENING
     Route: 048
     Dates: start: 20160701, end: 20161227
  3. EFFIENT [Concomitant]
     Active Substance: PRASUGREL HYDROCHLORIDE
     Indication: STENT PLACEMENT
     Dosage: 10MG TABLET BY MOUTH ONCE A DAY IN THE MORNING
     Route: 048
     Dates: start: 20160701

REACTIONS (9)
  - Muscle strain [Recovered/Resolved]
  - Back pain [Unknown]
  - Pain [Recovering/Resolving]
  - Movement disorder [Recovering/Resolving]
  - Chest pain [Recovered/Resolved]
  - Pain in extremity [Unknown]
  - Fall [Unknown]
  - Myalgia [Recovering/Resolving]
  - Musculoskeletal disorder [Recovering/Resolving]

NARRATIVE: CASE EVENT DATE: 201608
